FAERS Safety Report 5829760-X (Version None)
Quarter: 2008Q3

REPORT INFORMATION
  Report Type: 
  Country: None (occurrence: None)
  Receive Date: 20080801
  Receipt Date: 20080717
  Transmission Date: 20090109
  Serious: Yes (Other)
  Sender: FDA-Public Use
  Company Number: US-BAYER-US-2007-026278

PATIENT
  Age: 46 Year
  Sex: Female
  Weight: 76 kg

DRUGS (2)
  1. BETASERON [Suspect]
     Indication: SECONDARY PROGRESSIVE MULTIPLE SCLEROSIS
     Dosage: TOTAL DAILY DOSE: 8 MIU
     Route: 058
     Dates: start: 19970101, end: 20070824
  2. COPAXONE [Concomitant]
     Dates: start: 20070801

REACTIONS (3)
  - LEUKAEMIA [None]
  - NASOPHARYNGITIS [None]
  - NEUTROPENIA [None]
